FAERS Safety Report 5870880-1 (Version None)
Quarter: 2008Q3

REPORT INFORMATION
  Report Type: 
  Country: None (occurrence: None)
  Receive Date: 20080904
  Receipt Date: 20080902
  Transmission Date: 20090109
  Serious: Yes (Death, Life-Threatening)
  Sender: FDA-Public Use
  Company Number: JP-SANOFI-SYNTHELABO-F01200801217

PATIENT
  Sex: Male
  Weight: 60 kg

DRUGS (8)
  1. RENIVEZE [Concomitant]
     Dosage: UNK
  2. INSULIN [Concomitant]
     Dosage: UNK
  3. LOXONIN [Concomitant]
     Dosage: UNK
  4. ISOVORIN [Suspect]
     Dosage: UNK
     Route: 041
     Dates: start: 20080326, end: 20080326
  5. FLUOROURACIL [Suspect]
     Route: 042
     Dates: start: 20080314, end: 20080314
  6. ELPLAT [Suspect]
     Indication: RECTAL CANCER METASTATIC
     Route: 041
     Dates: start: 20080326, end: 20080326
  7. AVASTIN [Suspect]
     Route: 041
     Dates: start: 20080326, end: 20080326
  8. CORTICOSTEROID NOS [Suspect]
     Route: 065

REACTIONS (2)
  - BRONCHOSPASM [None]
  - PNEUMONIA [None]
